FAERS Safety Report 6772391-8 (Version None)
Quarter: 2010Q2

REPORT INFORMATION
  Report Type: 
  Country: None (occurrence: None)
  Receive Date: 20100616
  Receipt Date: 20090521
  Transmission Date: 20101027
  Serious: Yes (Hospitalization)
  Sender: FDA-Public Use
  Company Number: US-ASTRAZENECA-2009UW13173

PATIENT
  Sex: Male
  Weight: 13.6 kg

DRUGS (4)
  1. PULMICORT RESPULES [Suspect]
     Route: 055
  2. PREVACID [Concomitant]
  3. ALBUTEROL [Concomitant]
  4. ZITHROMAX [Concomitant]

REACTIONS (3)
  - LYMPHOCYTE COUNT DECREASED [None]
  - PNEUMONIA [None]
  - RESPIRATORY SYNCYTIAL VIRUS INFECTION [None]
